FAERS Safety Report 5014155-1 (Version None)
Quarter: 2006Q2

REPORT INFORMATION
  Report Type: 
  Country: None (occurrence: None)
  Receive Date: 20060414
  Receipt Date: 20060106
  Transmission Date: 20061013
  Serious: No
  Sender: FDA-Public Use
  Company Number: 2006SP000106

PATIENT
  Age: 55 Year
  Sex: Female
  Weight: 74.3899 kg

DRUGS (5)
  1. LUNESTA [Suspect]
     Indication: FIBROMYALGIA
     Dosage: SEE IMAGE
     Route: 048
     Dates: start: 20051001, end: 20051101
  2. LUNESTA [Suspect]
     Indication: FIBROMYALGIA
     Dosage: SEE IMAGE
     Route: 048
     Dates: start: 20051119, end: 20051231
  3. DHEA [Concomitant]
  4. PROGESTERONE [Concomitant]
  5. ESTROGEN NOS [Concomitant]

REACTIONS (2)
  - DYSPNOEA [None]
  - VISION BLURRED [None]
